FAERS Safety Report 21502940 (Version 3)
Quarter: 2023Q1

REPORT INFORMATION
  Report Type: Report from Study
  Country: US (occurrence: US)
  Receive Date: 20221025
  Receipt Date: 20230316
  Transmission Date: 20230418
  Serious: Yes (Other)
  Sender: FDA-Public Use
  Company Number: US-ABBVIE-4175408

PATIENT
  Sex: Female

DRUGS (2)
  1. IMBRUVICA [Suspect]
     Active Substance: IBRUTINIB
     Indication: Chronic lymphocytic leukaemia
     Route: 048
  2. IMBRUVICA [Suspect]
     Active Substance: IBRUTINIB
     Indication: Chronic lymphocytic leukaemia
     Dosage: FORM STRENGTH 420 MG
     Route: 048
     Dates: start: 20180418

REACTIONS (14)
  - Skin cancer [Unknown]
  - Onychoclasis [Unknown]
  - Increased tendency to bruise [Unknown]
  - Tooth disorder [Unknown]
  - Nail disorder [Unknown]
  - Hypertension [Not Recovered/Not Resolved]
  - Rosacea [Unknown]
  - Skin haemorrhage [Unknown]
  - Urinary tract infection [Unknown]
  - Skin abrasion [Unknown]
  - Skin atrophy [Unknown]
  - Hypoacusis [Unknown]
  - Erythema [Unknown]
  - Hypertrichosis [Unknown]

NARRATIVE: CASE EVENT DATE: 20220101
